FAERS Safety Report 9283811 (Version 2)
Quarter: 2013Q2

REPORT INFORMATION
  Report Type: Spontaneous
  Country: US (occurrence: US)
  Receive Date: 20130510
  Receipt Date: 20130530
  Transmission Date: 20140414
  Serious: Yes (Hospitalization)
  Sender: FDA-Public Use
  Company Number: US-ELI_LILLY_AND_COMPANY-US201304004673

PATIENT
  Age: 59 Year
  Sex: Female
  Weight: 85.71 kg

DRUGS (6)
  1. EFFIENT [Suspect]
     Indication: ANTIPLATELET THERAPY
     Dosage: 10 MG, QD
     Dates: start: 20120121
  2. ASA [Concomitant]
     Dosage: 81 MG, UNK
  3. NEXIUM [Concomitant]
  4. SYNTHROID [Concomitant]
  5. METOPROLOL [Concomitant]
  6. PRAVASTATIN [Concomitant]

REACTIONS (1)
  - Myocardial infarction [Unknown]
